FAERS Safety Report 10389140 (Version 3)
Quarter: 2014Q4

REPORT INFORMATION
  Report Type: Spontaneous
  Country: JP (occurrence: JP)
  Receive Date: 20140817
  Receipt Date: 20141126
  Transmission Date: 20150528
  Serious: Yes (Death, Hospitalization)
  Sender: FDA-Public Use
  Company Number: PHHY2013JP161061

PATIENT
  Age: 92 Year
  Sex: Female

DRUGS (3)
  1. TASIGNA [Suspect]
     Active Substance: NILOTINIB
     Dosage: 300 MG, QD
     Route: 048
     Dates: start: 20130213, end: 20130307
  2. TASIGNA [Suspect]
     Active Substance: NILOTINIB
     Dosage: 200 MG, QD
     Route: 048
     Dates: start: 20130326, end: 20130625
  3. TASIGNA [Suspect]
     Active Substance: NILOTINIB
     Indication: CHRONIC MYELOID LEUKAEMIA
     Dosage: 200 MG, QD
     Route: 048
     Dates: start: 20130206, end: 20130212

REACTIONS (6)
  - Cold sweat [Unknown]
  - Nausea [Unknown]
  - Thrombocytopenia [Recovered/Resolved]
  - Myocardial infarction [Fatal]
  - Cardiac arrest [Unknown]
  - Vomiting [Unknown]

NARRATIVE: CASE EVENT DATE: 20130307
